FAERS Safety Report 13089625 (Version 1)
Quarter: 2017Q1

REPORT INFORMATION
  Report Type: Spontaneous
  Country: US (occurrence: US)
  Receive Date: 20170105
  Receipt Date: 20170105
  Transmission Date: 20170428
  Serious: Yes (Death)
  Sender: FDA-Public Use
  Company Number: US-BAYER-2017-000746

PATIENT
  Age: 48 Year
  Sex: Female

DRUGS (12)
  1. NYSTATIN. [Suspect]
     Active Substance: NYSTATIN
  2. CLONIDINE. [Suspect]
     Active Substance: CLONIDINE
  3. POTASSIUM [POTASSIUM] [Suspect]
     Active Substance: POTASSIUM
  4. TEMAZEPAM. [Suspect]
     Active Substance: TEMAZEPAM
  5. NAPROXEN SODIUM ({= 220 MG) [Suspect]
     Active Substance: NAPROXEN SODIUM
  6. LISINOPRIL. [Suspect]
     Active Substance: LISINOPRIL
  7. LEVETIRACETAM. [Suspect]
     Active Substance: LEVETIRACETAM
  8. OMEPRAZOLE. [Suspect]
     Active Substance: OMEPRAZOLE
  9. ALPRAZOLAM. [Suspect]
     Active Substance: ALPRAZOLAM
  10. DULOXETINE. [Suspect]
     Active Substance: DULOXETINE
  11. HYDROCHLOROTHIAZIDE. [Suspect]
     Active Substance: HYDROCHLOROTHIAZIDE
  12. MORPHINE [Suspect]
     Active Substance: MORPHINE

REACTIONS (2)
  - Product use issue [Fatal]
  - Death [None]
